FAERS Safety Report 8817261 (Version 3)
Quarter: 2013Q2

REPORT INFORMATION
  Report Type: Report from Study
  Country: US (occurrence: US)
  Receive Date: 20121004
  Receipt Date: 20130422
  Transmission Date: 20140414
  Serious: Yes (Other)
  Sender: FDA-Public Use
  Company Number: US-US-EMD SERONO, INC.-7164515

PATIENT
  Age: 55 Year
  Sex: Female

DRUGS (2)
  1. REBIF [Suspect]
     Indication: MULTIPLE SCLEROSIS
     Route: 058
     Dates: start: 2003, end: 20120815
  2. REBIF [Suspect]
     Route: 058
     Dates: start: 20130415

REACTIONS (3)
  - Lung neoplasm malignant [Recovering/Resolving]
  - Blood pressure abnormal [Unknown]
  - Weight increased [Unknown]
